FAERS Safety Report 8175832-7 (Version None)
Quarter: 2012Q1

REPORT INFORMATION
  Report Type: 
  Country: None (occurrence: None)
  Receive Date: 20120228
  Receipt Date: 20120228
  Transmission Date: 20120608
  Serious: Yes (Other)
  Sender: FDA-Public Use
  Company Number: None

PATIENT
  Sex: Female
  Weight: 102.0593 kg

DRUGS (1)
  1. PAROXETINE [Suspect]
     Indication: MAJOR DEPRESSION
     Dosage: 60MG DAILY
     Dates: start: 20110801

REACTIONS (3)
  - GASTROINTESTINAL DISORDER [None]
  - PRODUCT SUBSTITUTION ISSUE [None]
  - SLEEP DISORDER [None]
